FAERS Safety Report 11281280 (Version 20)
Quarter: 2018Q2

REPORT INFORMATION
  Report Type: Report from Study
  Country: AT (occurrence: AT)
  Receive Date: 20150717
  Receipt Date: 20180622
  Transmission Date: 20180711
  Serious: Yes (Hospitalization, Other)
  Sender: FDA-Public Use
  Company Number: AT-INCYTE CORPORATION-2013IN002349

PATIENT

DRUGS (33)
  1. JAKAVI [Suspect]
     Active Substance: RUXOLITINIB
     Indication: MYELOFIBROSIS
     Dosage: 15 MG, QD
     Route: 048
     Dates: start: 20111102
  2. UROSIN [Concomitant]
     Active Substance: ALLOPURINOL
     Indication: HYPERURICAEMIA
     Dosage: 300 MG, QD
     Route: 065
  3. XANOR [Concomitant]
     Active Substance: ALPRAZOLAM
     Indication: PRODUCT USED FOR UNKNOWN INDICATION
     Dosage: 0.5 MG, QD
     Route: 065
  4. JAKAVI [Suspect]
     Active Substance: RUXOLITINIB
     Dosage: 5 MG, BID
     Route: 048
     Dates: start: 20140717
  5. BISOCOR [Concomitant]
     Active Substance: BISOPROLOL FUMARATE
     Dosage: 0.5 MG, QD
     Route: 065
  6. EUTHYROX [Concomitant]
     Active Substance: LEVOTHYROXINE SODIUM
     Dosage: 25 UG, UNK
     Route: 065
  7. NEXIUM [Concomitant]
     Active Substance: ESOMEPRAZOLE MAGNESIUM
     Indication: PRODUCT USED FOR UNKNOWN INDICATION
     Dosage: 40 MG, QD (1-0-0)
     Route: 065
  8. KEFLEX [Concomitant]
     Active Substance: CEPHALEXIN
     Indication: PRODUCT USED FOR UNKNOWN INDICATION
     Dosage: 1 DF, TID
     Route: 065
  9. MOLAXOLE [Concomitant]
     Active Substance: POLYETHYLENE GLYCOL 3350\POTASSIUM CHLORIDE\SODIUM BICARBONATE\SODIUM CHLORIDE
     Indication: PRODUCT USED FOR UNKNOWN INDICATION
     Dosage: 1 DF, QD
     Route: 065
  10. AMLODIPINE [Concomitant]
     Active Substance: AMLODIPINE BESYLATE
     Indication: HYPERTENSION
     Dosage: 5 MG, QD (1-0-0)
     Route: 065
     Dates: start: 20130805
  11. OTRIVIN [Concomitant]
     Active Substance: XYLOMETAZOLINE
     Indication: RHINORRHOEA
     Dosage: 1 DF, TID
     Route: 065
  12. UROSIN [Concomitant]
     Active Substance: ALLOPURINOL
     Dosage: 0.5 DF, MON, WED, FRI
     Route: 065
  13. UROSIN [Concomitant]
     Active Substance: ALLOPURINOL
     Dosage: 0.5 DF, ON EVEN DAY
     Route: 065
  14. ALLOPURINOL. [Concomitant]
     Active Substance: ALLOPURINOL
     Indication: PRODUCT USED FOR UNKNOWN INDICATION
     Dosage: 300 MG, ON EVEN DAYS
     Route: 065
  15. TRITTICO [Concomitant]
     Active Substance: TRAZODONE HYDROCHLORIDE
     Indication: PRODUCT USED FOR UNKNOWN INDICATION
     Dosage: 0.33 DF, UNK
     Route: 065
  16. DIOVAN [Concomitant]
     Active Substance: VALSARTAN
     Indication: HYPERTENSION
     Dosage: 160 MG, QD (1-0-0)
     Route: 065
     Dates: start: 20111116
  17. CLYSMOL [Concomitant]
     Indication: ABDOMINAL PAIN
     Dosage: 1 DF, BID
     Route: 065
  18. CLYSMOL [Concomitant]
     Indication: CONSTIPATION
  19. ALLOPURINOL. [Concomitant]
     Active Substance: ALLOPURINOL
     Dosage: 0.5 DF, QD
     Route: 065
  20. JAKAVI [Suspect]
     Active Substance: RUXOLITINIB
     Dosage: 5 MG, 2 DF, BID
     Route: 048
  21. ZOLDEM [Concomitant]
     Active Substance: ZOLPIDEM TARTRATE
     Indication: PRODUCT USED FOR UNKNOWN INDICATION
     Dosage: 10 MG, QD
     Route: 065
     Dates: start: 20150118
  22. DIABETEX [Concomitant]
     Indication: PRODUCT USED FOR UNKNOWN INDICATION
     Dosage: 850 MG, QD
     Route: 065
  23. NEXIUM [Concomitant]
     Active Substance: ESOMEPRAZOLE MAGNESIUM
     Indication: PRODUCT USED FOR UNKNOWN INDICATION
     Dosage: 40 MG, QD (1-0-0)
     Route: 065
  24. JAKAVI [Suspect]
     Active Substance: RUXOLITINIB
     Dosage: 20 MG, QD
     Route: 048
     Dates: start: 20111202
  25. JAKAVI [Suspect]
     Active Substance: RUXOLITINIB
     Dosage: 15 MG, QD
     Route: 048
     Dates: start: 20130507, end: 20140716
  26. XARELTO [Concomitant]
     Active Substance: RIVAROXABAN
     Indication: ANTICOAGULANT THERAPY
     Dosage: 15 MG, QD (1-0-0)
     Route: 065
     Dates: start: 20130805
  27. BISOCOR [Concomitant]
     Active Substance: BISOPROLOL FUMARATE
     Indication: PRODUCT USED FOR UNKNOWN INDICATION
     Dosage: 5 MG, QD
     Route: 065
     Dates: start: 20141117
  28. NEURONTIN [Concomitant]
     Active Substance: GABAPENTIN
     Indication: CHEST PAIN
     Dosage: 300 MG, QD
     Route: 065
  29. AUGMENTIN [Concomitant]
     Active Substance: AMOXICILLIN\CLAVULANATE POTASSIUM
     Indication: PRODUCT USED FOR UNKNOWN INDICATION
     Dosage: 1 G, QD (3X1)
     Route: 065
  30. EUTHYROX [Concomitant]
     Active Substance: LEVOTHYROXINE SODIUM
     Indication: PRODUCT USED FOR UNKNOWN INDICATION
     Dosage: 37.5 NG, QD
     Route: 065
     Dates: start: 20140306
  31. PANTOLOC//PANTOPRAZOLE SODIUM SESQUIHYDRATE [Concomitant]
     Active Substance: PANTOPRAZOLE SODIUM
     Indication: PRODUCT USED FOR UNKNOWN INDICATION
     Dosage: 40 MG, QD
     Route: 065
     Dates: start: 20130813
  32. XEFO [Concomitant]
     Active Substance: LORNOXICAM
     Indication: PAIN
     Dosage: 8 MG, IN CASE OF PAIN
     Route: 065
  33. METFORMIN [Concomitant]
     Active Substance: METFORMIN HYDROCHLORIDE
     Indication: PRODUCT USED FOR UNKNOWN INDICATION
     Dosage: 850 MG, QD (0-0-1)
     Route: 065

REACTIONS (44)
  - Neck pain [Recovered/Resolved]
  - Spinal pain [Recovered/Resolved]
  - Nausea [Recovered/Resolved]
  - Paraesthesia [Recovered/Resolved]
  - Oedema peripheral [Recovering/Resolving]
  - Platelet count decreased [Unknown]
  - Spinal pain [Unknown]
  - Groin pain [Recovered/Resolved]
  - Condition aggravated [Recovered/Resolved with Sequelae]
  - Spinal osteoarthritis [Unknown]
  - Blood pressure increased [Unknown]
  - Serum ferritin increased [Not Recovered/Not Resolved]
  - Hyperventilation [Recovered/Resolved]
  - Palpitations [Recovered/Resolved]
  - Splenomegaly [Unknown]
  - Spinal pain [Recovered/Resolved]
  - Spinal pain [Recovered/Resolved]
  - Infected dermal cyst [Recovering/Resolving]
  - Pneumonia [Recovered/Resolved]
  - Weight decreased [Not Recovered/Not Resolved]
  - Aneurysm [Recovered/Resolved]
  - Aortic stenosis [Unknown]
  - Mitral valve incompetence [Recovered/Resolved]
  - Vertebral foraminal stenosis [Unknown]
  - Thrombocytopenia [Recovered/Resolved]
  - Anaemia [Recovering/Resolving]
  - Escherichia urinary tract infection [Recovering/Resolving]
  - Nausea [Unknown]
  - Pacemaker generated arrhythmia [Recovered/Resolved]
  - Pleural effusion [Recovered/Resolved]
  - Haematoma [Unknown]
  - Aneurysm [Recovered/Resolved]
  - Aortic arteriosclerosis [Unknown]
  - Osteoarthritis [Unknown]
  - Post procedural haemorrhage [Recovered/Resolved]
  - Polyneuropathy [Not Recovered/Not Resolved]
  - Spinal pain [Recovered/Resolved]
  - Thrombocytopenia [Recovered/Resolved]
  - Pneumonia [Recovered/Resolved]
  - Dyspnoea [Recovered/Resolved]
  - Dyspnoea [Recovered/Resolved]
  - Blood glucose increased [Unknown]
  - Hypothyroidism [Recovered/Resolved]
  - Neuropathy peripheral [Unknown]

NARRATIVE: CASE EVENT DATE: 20111128
